FAERS Safety Report 4616053-1 (Version None)
Quarter: 2005Q1

REPORT INFORMATION
  Report Type: 
  Country: None (occurrence: None)
  Receive Date: 20050321
  Receipt Date: 20050304
  Transmission Date: 20050727
  Serious: Yes (Other)
  Sender: FDA-Public Use
  Company Number: S05-AUS-00828-01

PATIENT
  Age: 77 Year
  Sex: Male
  Weight: 75 kg

DRUGS (14)
  1. CIPRAMIL (CITALOPRAM HYDROBROMIDE) [Suspect]
     Indication: DEPRESSION
     Dosage: 20 MG BID PO
     Route: 048
     Dates: start: 20050205, end: 20050213
  2. CIPRAMIL (CITALOPRAM HYDROBROMIDE) [Suspect]
     Indication: DEPRESSION
     Dosage: 20 MG QD PO
     Route: 048
     Dates: start: 20041206, end: 20050204
  3. CIPRAMIL (CITALOPRAM HYDROBROMIDE) [Suspect]
     Indication: DEPRESSION
     Dosage: 20 MG QD PO
     Route: 048
     Dates: start: 20050213
  4. DIAMICRON (GLICLAZIDE) [Concomitant]
  5. METFORMIN [Concomitant]
  6. ASPIRIN TAB [Concomitant]
  7. METOPROLOL TARTRATE [Concomitant]
  8. ENALAPRIL [Concomitant]
  9. AMLODIPINE [Concomitant]
  10. FRUSEMIDE [Concomitant]
  11. SIMVASTATIN [Concomitant]
  12. ISCOVER (CLOPIDOGREL SULFATE) [Concomitant]
  13. MONODUR (ISOSORBIDE MONONITRATE) [Concomitant]
  14. NEXIUM [Concomitant]

REACTIONS (1)
  - BLOOD GLUCOSE INCREASED [None]
